FAERS Safety Report 6923508-3 (Version None)
Quarter: 2010Q3

REPORT INFORMATION
  Report Type: 
  Country: None (occurrence: None)
  Receive Date: 20100813
  Receipt Date: 20100805
  Transmission Date: 20110219
  Serious: Yes (Hospitalization)
  Sender: FDA-Public Use
  Company Number: A0789986A

PATIENT
  Age: 33 Year
  Sex: Female

DRUGS (7)
  1. AVANDIA [Suspect]
     Indication: DIABETES MELLITUS
     Dosage: 8MG ALTERNATE DAYS
     Route: 048
     Dates: start: 19990801, end: 20080101
  2. LISINOPRIL [Concomitant]
  3. METOCLOPRAMIDE [Concomitant]
  4. NOVOLOG [Concomitant]
  5. MEDROXYPROGESTERONE [Concomitant]
  6. LENTE INSULIN [Concomitant]
  7. PRILOSEC [Concomitant]

REACTIONS (2)
  - CARDIAC FAILURE CONGESTIVE [None]
  - MYOCARDIAL INFARCTION [None]
